FAERS Safety Report 6369593-1 (Version None)
Quarter: 2009Q3

REPORT INFORMATION
  Report Type: 
  Country: None (occurrence: None)
  Receive Date: 20090923
  Receipt Date: 20090923
  Transmission Date: 20100115
  Serious: Yes (Hospitalization, Other)
  Sender: FDA-Public Use
  Company Number: PHHO2009IL08791

PATIENT
  Sex: Female
  Weight: 70 kg

DRUGS (7)
  1. ALISKIREN ALI+TAB+HT [Suspect]
     Indication: HYPERTENSION
     Dosage: 150 MG, QD
     Route: 048
     Dates: start: 20090508
  2. ALISKIREN ALI+TAB+HT [Suspect]
     Dosage: 300 MG, QD
     Dates: end: 20090709
  3. AMLODIPINE [Suspect]
     Dosage: 5 MG, QD
  4. AMLODIPINE [Suspect]
     Dosage: 10 MG, QD
  5. HYDROCHLOROTHIAZIDE [Suspect]
     Dosage: 12.5 MG, QD
  6. HYDROCHLOROTHIAZIDE [Suspect]
     Dosage: 25 MG, QD
  7. ANTIHYPERTENSIVE DRUGS [Concomitant]

REACTIONS (3)
  - HYPERTENSION [None]
  - ORTHOSTATIC HYPOTENSION [None]
  - SYNCOPE [None]
